FAERS Safety Report 4429018-X (Version None)
Quarter: 2004Q3

REPORT INFORMATION
  Report Type: 
  Country: None (occurrence: None)
  Receive Date: 20040726
  Receipt Date: 20040329
  Transmission Date: 20050211
  Serious: No
  Sender: FDA-Public Use
  Company Number: USA040156060

PATIENT
  Age: 79 Year
  Sex: Female

DRUGS (3)
  1. FORTEO [Suspect]
     Indication: OSTEOPOROSIS
     Dates: start: 20031201
  2. EVISTA [Suspect]
     Indication: OSTEOPOROSIS
  3. MIRALAX [Concomitant]

REACTIONS (6)
  - BLOOD PRESSURE INCREASED [None]
  - DIZZINESS [None]
  - HEADACHE [None]
  - HEART RATE INCREASED [None]
  - INJECTION SITE MASS [None]
  - PALPITATIONS [None]
